FAERS Safety Report 6346764-1 (Version None)
Quarter: 2009Q3

REPORT INFORMATION
  Report Type: 
  Country: None (occurrence: None)
  Receive Date: 20090904
  Receipt Date: 20090825
  Transmission Date: 20100115
  Serious: Yes (Hospitalization)
  Sender: FDA-Public Use
  Company Number: 2009SP022031

PATIENT
  Age: 63 Year
  Sex: Male
  Weight: 102 kg

DRUGS (6)
  1. RIBAVIRIN [Suspect]
     Indication: HEPATITIS C
     Dosage: 600 MG; QD; PO
     Route: 048
     Dates: end: 20090825
  2. PEG-INTERFERON ALFA 2A (PEGINTERFERON ALFA-2A) [Suspect]
     Indication: HEPATITIS C
     Dosage: 180 MCG; QW; SC
     Route: 058
     Dates: end: 20090825
  3. BLINDED SCH 503034 (S-P) (HCV PROTEASE INHIBITOR) [Suspect]
     Indication: HEPATITIS C
     Dosage: 800 MG; TID; PO
     Route: 048
  4. L-THYROXIN (CON.) [Concomitant]
  5. METOPROLOL (CON.) [Concomitant]
  6. METFORMIN (CON.) [Concomitant]

REACTIONS (1)
  - ANGINA PECTORIS [None]
